FAERS Safety Report 25522304 (Version 2)
Quarter: 2025Q3

REPORT INFORMATION
  Report Type: Spontaneous
  Country: US (occurrence: US)
  Receive Date: 20250707
  Receipt Date: 20250725
  Transmission Date: 20251020
  Serious: Yes (Death, Hospitalization, Other)
  Sender: GLAXOSMITHKLINE
  Company Number: US-GSK-US2025083124

PATIENT
  Sex: Female
  Weight: 75.737 kg

DRUGS (1)
  1. OJJAARA [Suspect]
     Active Substance: MOMELOTINIB DIHYDROCHLORIDE MONOHYDRATE
     Indication: Product used for unknown indication
     Dosage: 1 DF, QD,WE WILL CONSIDER DOSE ESCALATION BASED ON SIDE EFFECTS

REACTIONS (5)
  - Death [Fatal]
  - Hospitalisation [Not Recovered/Not Resolved]
  - Cerebral haemorrhage [Unknown]
  - Fall [Unknown]
  - Mental status changes [Unknown]
